FAERS Safety Report 7824685-2 (Version None)
Quarter: 2011Q4

REPORT INFORMATION
  Report Type: 
  Country: None (occurrence: None)
  Receive Date: 20111018
  Receipt Date: 20111018
  Transmission Date: 20120403
  Serious: Yes (Hospitalization)
  Sender: FDA-Public Use
  Company Number: None

PATIENT
  Age: 55 Year
  Sex: Female
  Weight: 98.4306 kg

DRUGS (7)
  1. DEXAMETHASONE [Concomitant]
  2. ERLOTINIB HYDROCHLORIDE [Suspect]
     Indication: NON-SMALL CELL LUNG CANCER
     Dosage: 150 MG QD
     Dates: start: 20110810, end: 20110930
  3. KCL SLOW RELEASE [Concomitant]
  4. LISINOPRIL [Concomitant]
  5. NYSTATIN [Concomitant]
  6. CLONAZEPAM [Concomitant]
  7. LIDOCAINE [Concomitant]

REACTIONS (2)
  - FAILURE TO THRIVE [None]
  - DEHYDRATION [None]
